FAERS Safety Report 9440384 (Version 1)
Quarter: 2013Q3

REPORT INFORMATION
  Report Type: Spontaneous
  Country: US (occurrence: US)
  Receive Date: 20130805
  Receipt Date: 20130805
  Transmission Date: 20140515
  Serious: Yes (Other)
  Sender: FDA-Public Use
  Company Number: US-BAYER-2013-094166

PATIENT
  Age: 38 Year
  Sex: Female

DRUGS (7)
  1. YASMIN [Suspect]
  2. IBUPROFEN [Concomitant]
     Dosage: 800 MG, TID
  3. MAXALT [Concomitant]
     Dosage: 10 MG, UNK
  4. SYNTHROID [Concomitant]
     Dosage: 0.05 MG, DAILY
  5. XANAX [Concomitant]
     Dosage: 0.25 MG, TID
  6. PREDNISONE [Concomitant]
     Dosage: 10 MG, DAILY
  7. HYDROCODONE W/APAP [Concomitant]
     Dosage: 5/500

REACTIONS (2)
  - Pulmonary embolism [None]
  - Deep vein thrombosis [None]
